FAERS Safety Report 5083404-6 (Version None)
Quarter: 2006Q3

REPORT INFORMATION
  Report Type: 
  Country: None (occurrence: None)
  Receive Date: 20060818
  Receipt Date: 20060807
  Transmission Date: 20061208
  Serious: Yes (Hospitalization, Congenital Anomaly, Other)
  Sender: FDA-Public Use
  Company Number: FR-GILEAD-2006-0010037

PATIENT
  Sex: Female

DRUGS (6)
  1. VIREAD [Suspect]
     Route: 064
     Dates: start: 20040520, end: 20040918
  2. RETROVIR [Suspect]
     Route: 042
     Dates: start: 20040918, end: 20040918
  3. RETROVIR [Suspect]
     Route: 064
     Dates: start: 20040520, end: 20040918
  4. KALETRA [Suspect]
     Route: 064
     Dates: start: 20040520, end: 20040918
  5. VIRACEPT [Concomitant]
     Route: 064
     Dates: end: 20040520
  6. COMBIVIR [Concomitant]
     Route: 064
     Dates: end: 20040520

REACTIONS (3)
  - ANAEMIA [None]
  - DRUG EXPOSURE DURING PREGNANCY [None]
  - GLUCOSE-6-PHOSPHATE DEHYDROGENASE DEFICIENCY [None]
